FAERS Safety Report 10904807 (Version 2)
Quarter: 2017Q2

REPORT INFORMATION
  Report Type: Report from Study
  Country: US (occurrence: US)
  Receive Date: 20150311
  Receipt Date: 20170511
  Transmission Date: 20170829
  Serious: Yes (Other)
  Sender: FDA-Public Use
  Company Number: US-RANBAXY-2015US-94050

PATIENT
  Age: 62 Year
  Sex: Male

DRUGS (1)
  1. LORAZEPAM. [Suspect]
     Active Substance: LORAZEPAM
     Indication: ALCOHOL WITHDRAWAL SYNDROME
     Dosage: UNK
     Route: 065

REACTIONS (1)
  - Delirium [Recovering/Resolving]
